FAERS Safety Report 11064425 (Version 1)
Quarter: 2015Q2

REPORT INFORMATION
  Report Type: Spontaneous
  Country: FR (occurrence: FR)
  Receive Date: 20150424
  Receipt Date: 20150424
  Transmission Date: 20150821
  Serious: Yes (Hospitalization, Other)
  Sender: FDA-Public Use
  Company Number: FR-GLAXOSMITHKLINE-FR2015GSK055969

PATIENT
  Age: 54 Year
  Sex: Male

DRUGS (11)
  1. ALKERAN [Suspect]
     Active Substance: MELPHALAN
     Indication: B-CELL LYMPHOMA
     Dosage: 284 MG, UNK
     Route: 065
     Dates: start: 20100928, end: 20100928
  2. ETOPOSIDE. [Suspect]
     Active Substance: ETOPOSIDE
  3. ENDOXAN [Suspect]
     Active Substance: CYCLOPHOSPHAMIDE
     Indication: B-CELL LYMPHOMA
     Dosage: UNK
     Route: 041
     Dates: start: 20040205
  4. FLUDARABINE [Suspect]
     Active Substance: FLUDARABINE PHOSPHATE
  5. BICNU [Suspect]
     Active Substance: CARMUSTINE
  6. ETOPOPHOS [Suspect]
     Active Substance: ETOPOSIDE PHOSPHATE
  7. MABTHERA [Concomitant]
     Active Substance: RITUXIMAB
  8. CYTARABINE. [Concomitant]
     Active Substance: CYTARABINE
  9. DOXORUBICIN [Suspect]
     Active Substance: DOXORUBICIN
     Dosage: UNK
     Route: 041
     Dates: start: 20040205, end: 200407
  10. INTERFERON [Concomitant]
     Active Substance: INTERFERON
  11. ZEVALIN [Suspect]
     Active Substance: IBRITUMOMAB TIUXETAN

REACTIONS (1)
  - 5q minus syndrome [Unknown]

NARRATIVE: CASE EVENT DATE: 201412
